FAERS Safety Report 6257663-8 (Version None)
Quarter: 2009Q3

REPORT INFORMATION
  Report Type: 
  Country: None (occurrence: None)
  Receive Date: 20090706
  Receipt Date: 20090624
  Transmission Date: 20100115
  Serious: Yes (Other)
  Sender: FDA-Public Use
  Company Number: GB-TEVA-194010ISR

PATIENT
  Age: 68 Year
  Sex: Male

DRUGS (10)
  1. FUROSEMIDE [Suspect]
  2. FUROSEMIDE [Suspect]
  3. LANSOPRAZOLE [Suspect]
  4. PERINDOPRIL [Suspect]
  5. ACETYLSALICYLIC ACID [Suspect]
  6. ACIPIMOX [Suspect]
  7. AMIODARONE HCL [Suspect]
  8. DIGOXIN [Suspect]
  9. BISOPROLOL [Suspect]
  10. EZETIMIBE [Suspect]
     Route: 048

REACTIONS (11)
  - ATRIAL FIBRILLATION [None]
  - CARDIAC MURMUR [None]
  - DIZZINESS [None]
  - DYSPNOEA [None]
  - FATIGUE [None]
  - FEELING ABNORMAL [None]
  - LEFT VENTRICULAR DYSFUNCTION [None]
  - OEDEMA PERIPHERAL [None]
  - PARAESTHESIA [None]
  - VENOUS PRESSURE JUGULAR INCREASED [None]
  - VENTRICULAR TACHYCARDIA [None]
